FAERS Safety Report 13825959 (Version 1)
Quarter: 2017Q3

REPORT INFORMATION
  Report Type: Spontaneous
  Country: GB (occurrence: GB)
  Receive Date: 20170802
  Receipt Date: 20170802
  Transmission Date: 20171127
  Serious: Yes (Other)
  Sender: FDA-Public Use
  Company Number: GB-TEVA-791407ACC

PATIENT
  Age: 55 Year
  Sex: Male
  Weight: 81 kg

DRUGS (11)
  1. ATORVASTATIN [Concomitant]
     Active Substance: ATORVASTATIN
     Indication: HYPERCHOLESTEROLAEMIA
     Dosage: 1 DOSAGE FORMS DAILY;
     Dates: start: 20170202
  2. CLENIL MODULITE [Concomitant]
     Active Substance: BECLOMETHASONE DIPROPIONATE
     Dosage: 4 DOSAGE FORMS DAILY;
     Dates: start: 20170202
  3. LANSOPRAZOLE. [Concomitant]
     Active Substance: LANSOPRAZOLE
     Dosage: 1 DOSAGE FORMS DAILY;
     Dates: start: 20170202
  4. SALBUTAMOL [Concomitant]
     Active Substance: ALBUTEROL
     Dosage: UP TO FOUR TIMES A DAY.
     Route: 055
     Dates: start: 20170202
  5. METFORMIN [Concomitant]
     Active Substance: METFORMIN HYDROCHLORIDE
     Dosage: TAKE TWO EACH MORNING AND ONE TO BE...
     Dates: start: 20170202
  6. ASPIRIN. [Concomitant]
     Active Substance: ASPIRIN
     Dosage: 1 DOSAGE FORMS DAILY;
     Dates: start: 20170202
  7. ATENOLOL. [Concomitant]
     Active Substance: ATENOLOL
     Dosage: 1 DOSAGE FORMS DAILY; EACH MORNING.
     Dates: start: 20170202
  8. SILDENAFIL. [Concomitant]
     Active Substance: SILDENAFIL
     Dosage: USE AS DIRECTED.
     Dates: start: 20170202
  9. GLIMEPIRIDE. [Suspect]
     Active Substance: GLIMEPIRIDE
     Dates: start: 20170202
  10. CODEINE PHOSPHATE [Concomitant]
     Active Substance: CODEINE PHOSPHATE
     Dosage: 1-2 FOUR TIMES A DAY.
     Dates: start: 20170504, end: 20170505
  11. TRAMADOL. [Concomitant]
     Active Substance: TRAMADOL
     Dosage: 1-2 EVERY 4-6 HOURS MAXIMUM 8 IN 24 HOURS.
     Dates: start: 20170504, end: 20170505

REACTIONS (3)
  - Cough [Recovering/Resolving]
  - Dyspnoea [Recovering/Resolving]
  - Pulmonary fibrosis [Recovering/Resolving]

NARRATIVE: CASE EVENT DATE: 20170711
